FAERS Safety Report 5619960-6 (Version None)
Quarter: 2008Q1

REPORT INFORMATION
  Report Type: 
  Country: None (occurrence: None)
  Receive Date: 20080208
  Receipt Date: 20080130
  Transmission Date: 20080703
  Serious: Yes (Death)
  Sender: FDA-Public Use
  Company Number: US-ROCHE-544305

PATIENT
  Age: 39 Year
  Sex: Female
  Weight: 63.5 kg

DRUGS (7)
  1. PEGASYS [Suspect]
     Indication: HEPATITIS C
     Route: 058
     Dates: start: 20070911
  2. RIBAVIRIN [Suspect]
     Indication: HEPATITIS C
     Dosage: DOSE: 400 MG/ 600 MG TWICE DAILY.
     Route: 048
     Dates: start: 20070911
  3. LEXAPRO [Concomitant]
     Dates: start: 20071105
  4. BUSPAR [Concomitant]
     Dates: start: 20071105
  5. PRILOSEC [Concomitant]
     Dates: start: 20071105
  6. RISPERDAL [Concomitant]
     Dates: start: 20071105
  7. REMERON [Concomitant]
     Dates: start: 20071105

REACTIONS (4)
  - ANXIETY [None]
  - DEATH [None]
  - FATIGUE [None]
  - PAIN [None]
